FAERS Safety Report 6373640-0 (Version None)
Quarter: 2009Q3

REPORT INFORMATION
  Report Type: 
  Country: None (occurrence: None)
  Receive Date: 20090924
  Receipt Date: 20090910
  Transmission Date: 20100115
  Serious: Yes (Hospitalization)
  Sender: FDA-Public Use
  Company Number: NO-PFIZER INC-2009267274

PATIENT
  Age: 36 Year

DRUGS (2)
  1. ZYVOXID [Suspect]
     Indication: TUBERCULOSIS
     Dosage: 600 MG, 2X/DAY
     Route: 048
     Dates: start: 20080915, end: 20081217
  2. ZYVOXID [Suspect]
     Dosage: 600 MG, 1X/DAY
     Dates: end: 20090213

REACTIONS (2)
  - ANAEMIA [None]
  - PAIN IN EXTREMITY [None]
